FAERS Safety Report 21133867 (Version 1)
Quarter: 2022Q3

REPORT INFORMATION
  Report Type: Spontaneous
  Country: NL (occurrence: NL)
  Receive Date: 20220726
  Receipt Date: 20220726
  Transmission Date: 20221027
  Serious: Yes (Other)
  Sender: FDA-Public Use
  Company Number: None

PATIENT
  Sex: Female
  Weight: 59 kg

DRUGS (1)
  1. DESLORATADINE [Suspect]
     Active Substance: DESLORATADINE
     Indication: Seasonal allergy
     Dosage: 5 MILLIGRAM, QD (1X PER DAY 1 TABLET)
     Route: 065
     Dates: start: 20220609

REACTIONS (4)
  - Suicidal ideation [Unknown]
  - Abdominal distension [Unknown]
  - Depressed mood [Not Recovered/Not Resolved]
  - Weight increased [Recovering/Resolving]
